FAERS Safety Report 15376464 (Version 2)
Quarter: 2018Q3

REPORT INFORMATION
  Report Type: Spontaneous
  Country: DE (occurrence: DE)
  Receive Date: 20180912
  Receipt Date: 20180919
  Transmission Date: 20181010
  Serious: Yes (Hospitalization)
  Sender: FDA-Public Use
  Company Number: DE-ANIPHARMA-2018-DE-000157

PATIENT
  Sex: Female

DRUGS (5)
  1. VALSARTAN HEXAL [Suspect]
     Active Substance: VALSARTAN
     Route: 065
  2. ATACAND [Suspect]
     Active Substance: CANDESARTAN CILEXETIL
     Route: 048
     Dates: start: 2015
  3. VALSARTAN HEXAL COMP [Suspect]
     Active Substance: VALSARTAN
     Dosage: DAILY
     Route: 065
     Dates: start: 2012
  4. DIOVAN [Suspect]
     Active Substance: VALSARTAN
     Dosage: DAILY
     Route: 065
     Dates: start: 20180718
  5. CO?DIOVAN [Suspect]
     Active Substance: HYDROCHLOROTHIAZIDE\VALSARTAN
     Dates: start: 20180718

REACTIONS (2)
  - Genital pain [Recovered/Resolved]
  - Cystitis [Recovered/Resolved]

NARRATIVE: CASE EVENT DATE: 2014
